FAERS Safety Report 9454435 (Version 2)
Quarter: 2013Q4

REPORT INFORMATION
  Report Type: Spontaneous
  Country: US (occurrence: None)
  Receive Date: 20130808
  Receipt Date: 20131120
  Transmission Date: 20140711
  Serious: Yes (Other)
  Sender: FDA-Public Use
  Company Number: 20130378

PATIENT
  Age: 51 Year
  Sex: Male
  Weight: 107.1 kg

DRUGS (10)
  1. LEVETIRACETAM [Suspect]
     Indication: CONVULSION PROPHYLAXIS
     Dosage: HORUS + 750 MG
     Route: 041
     Dates: start: 20130722, end: 20130726
  2. LEVETIRACETAM [Suspect]
     Indication: CEREBRAL HAEMORRHAGE
     Dosage: HORUS + 750 MG
     Route: 041
     Dates: start: 20130722, end: 20130726
  3. LEVETIRACETAM [Suspect]
     Indication: CONVULSION PROPHYLAXIS
     Route: 041
     Dates: start: 20130722, end: 20130726
  4. LEVETIRACETAM [Suspect]
     Indication: CEREBRAL HAEMORRHAGE
     Route: 041
     Dates: start: 20130722, end: 20130726
  5. ATIVAN (LORAZEPAM) [Concomitant]
  6. FOSPHENYTOIN SODIUM INJECTRION, US(025-21)  (PHOSPHENYTOIN SODIUM) [Concomitant]
  7. PANTOPRAZOLE [Concomitant]
  8. KCL/SWFI,20 MEQ/100 ML [Concomitant]
  9. NSS,100 MG.HOUR INTRAVENOUS DRIP [Concomitant]
  10. 1: NICARDIPINE,TITRATED?INTRAVENOUS DRIP [Concomitant]

REACTIONS (5)
  - Convulsion [None]
  - Blood potassium decreased [None]
  - Anticonvulsant drug level below therapeutic [None]
  - Blood glucose increased [None]
  - Product quality issue [None]
